FAERS Safety Report 16844439 (Version 1)
Quarter: 2019Q3

REPORT INFORMATION
  Report Type: Spontaneous
  Country: US (occurrence: US)
  Receive Date: 20190802
  Receipt Date: 20190802
  Transmission Date: 20191005
  Serious: Yes (Death)
  Sender: FDA-Public Use
  Company Number: None

PATIENT
  Age: 85 Year
  Sex: Female

DRUGS (6)
  1. ATORVASTATIN [Concomitant]
     Active Substance: ATORVASTATIN
  2. ALENDRONATE [Concomitant]
     Active Substance: ALENDRONATE SODIUM
  3. DECARA [Concomitant]
  4. DONEPEZIL. [Concomitant]
     Active Substance: DONEPEZIL
  5. HYDROXYCHLOR [Concomitant]
     Active Substance: HYDROXYCHLOROQUINE
  6. HYDROXYUREA 500MG [Suspect]
     Active Substance: HYDROXYUREA
     Indication: BREAST CANCER FEMALE
     Route: 048
     Dates: start: 20190320

REACTIONS (1)
  - Death [None]

NARRATIVE: CASE EVENT DATE: 20190728
